FAERS Safety Report 6030881-X (Version None)
Quarter: 2009Q1

REPORT INFORMATION
  Report Type: 
  Country: None (occurrence: None)
  Receive Date: 20090106
  Receipt Date: 20081222
  Transmission Date: 20090719
  Serious: No
  Sender: FDA-Public Use
  Company Number: KV200801256

PATIENT
  Age: 62 Year
  Sex: Male
  Weight: 72.6 kg

DRUGS (3)
  1. ISOSORBIDE MONONITRATE [Suspect]
     Indication: CARDIAC DISORDER
     Dosage: 30 MG, QD, ORAL
     Route: 048
     Dates: start: 20070101
  2. GEMFIBROZIL [Concomitant]
  3. METOPROLOL TARTRATE [Concomitant]

REACTIONS (8)
  - CONSTIPATION [None]
  - DYSPNOEA [None]
  - GAIT DISTURBANCE [None]
  - MYOCARDIAL INFARCTION [None]
  - PAIN IN EXTREMITY [None]
  - PRODUCT QUALITY ISSUE [None]
  - RENAL PAIN [None]
  - VISUAL IMPAIRMENT [None]
